FAERS Safety Report 11734294 (Version 1)
Quarter: 2015Q4

REPORT INFORMATION
  Report Type: Spontaneous
  Country: US (occurrence: None)
  Receive Date: 20151112
  Receipt Date: 20151112
  Transmission Date: 20160304
  Serious: Yes (Other)
  Sender: FDA-Public Use
  Company Number: None

PATIENT
  Sex: Female
  Weight: 185.98 kg

DRUGS (1)
  1. GENERIC FENTANYL [Suspect]
     Active Substance: FENTANYL

REACTIONS (6)
  - Depressed level of consciousness [None]
  - Application site reaction [None]
  - Application site ulcer [None]
  - Impaired driving ability [None]
  - Product substitution issue [None]
  - Application site exfoliation [None]
